FAERS Safety Report 11169736 (Version 1)
Quarter: 2015Q2

REPORT INFORMATION
  Report Type: Spontaneous
  Country: US (occurrence: None)
  Receive Date: 20150604
  Receipt Date: 20150604
  Transmission Date: 20150821
  Serious: Yes (Hospitalization)
  Sender: FDA-Public Use
  Company Number: UCM201505-000367

PATIENT
  Age: 60 Year
  Sex: Male

DRUGS (2)
  1. SIMVASTATIN (SIMVASTATIN) (SIMVASTATIN) [Suspect]
     Active Substance: SIMVASTATIN
     Dosage: NIGHTLY
  2. AMLODIPINE [Suspect]
     Active Substance: AMLODIPINE BESYLATE
     Indication: HYPERTENSION

REACTIONS (5)
  - Respiratory distress [None]
  - Rhabdomyolysis [None]
  - Drug interaction [None]
  - Acute myocardial infarction [None]
  - Urinary tract infection [None]
